FAERS Safety Report 9240590 (Version 2)
Quarter: 2013Q2

REPORT INFORMATION
  Report Type: Spontaneous
  Country: US (occurrence: US)
  Receive Date: 20130418
  Receipt Date: 20130606
  Transmission Date: 20140414
  Serious: Yes (Hospitalization)
  Sender: FDA-Public Use
  Company Number: US-BAXTER-2013BAX014168

PATIENT
  Age: 42 Year
  Sex: Female
  Weight: 65.77 kg

DRUGS (5)
  1. GAMMAGARD LIQUID [Suspect]
     Indication: MULTIPLE SCLEROSIS
     Dosage: ONCE A DAY FOR 5 DAYS
     Route: 042
     Dates: start: 20130228, end: 20130228
  2. GAMMAGARD LIQUID [Suspect]
     Indication: OFF LABEL USE
     Route: 042
     Dates: start: 20130301, end: 20130301
  3. GAMMAGARD LIQUID [Suspect]
     Route: 042
     Dates: start: 20130308, end: 20130308
  4. GAMMAGARD LIQUID [Suspect]
     Route: 042
     Dates: start: 20130309, end: 20130309
  5. GAMMAGARD LIQUID [Suspect]
     Route: 042
     Dates: start: 20130310, end: 20130310

REACTIONS (9)
  - Multiple sclerosis relapse [Not Recovered/Not Resolved]
  - Multiple sclerosis [Not Recovered/Not Resolved]
  - Asthenia [Not Recovered/Not Resolved]
  - Muscle spasms [Not Recovered/Not Resolved]
  - Pyrexia [Not Recovered/Not Resolved]
  - Heart rate increased [Not Recovered/Not Resolved]
  - Oedema peripheral [Not Recovered/Not Resolved]
  - Constipation [Not Recovered/Not Resolved]
  - Drug ineffective [Unknown]
